FAERS Safety Report 13901832 (Version 1)
Quarter: 2017Q3

REPORT INFORMATION
  Report Type: Spontaneous
  Country: US (occurrence: US)
  Receive Date: 20170824
  Receipt Date: 20170824
  Transmission Date: 20171127
  Serious: No
  Sender: FDA-Public Use
  Company Number: US-009507513-1708USA003704

PATIENT
  Sex: Female

DRUGS (1)
  1. NUVARING [Suspect]
     Active Substance: ETHINYL ESTRADIOL\ETONOGESTREL
     Dosage: USING NUVARING CONTINUOUSLY (STRENGTH REPORTED AS 0.015/0.12 (UNITS UNSPECIFIED)
     Route: 067

REACTIONS (2)
  - Abnormal withdrawal bleeding [Unknown]
  - Incorrect drug administration duration [Unknown]
